FAERS Safety Report 14018382 (Version 1)
Quarter: 2017Q3

REPORT INFORMATION
  Report Type: Spontaneous
  Country: US (occurrence: US)
  Receive Date: 20170927
  Receipt Date: 20170927
  Transmission Date: 20171128
  Serious: No
  Sender: FDA-Public Use
  Company Number: None

PATIENT
  Age: 67 Year
  Sex: Female
  Weight: 85.5 kg

DRUGS (5)
  1. AMLODOPINE [Concomitant]
     Active Substance: AMLODIPINE BESYLATE
  2. ARTHRITIS TYLENOL [Concomitant]
  3. LISONOPRIL [Concomitant]
  4. PARODONTAX [Suspect]
     Active Substance: STANNOUS FLUORIDE
     Indication: GINGIVAL BLEEDING
     Dosage: ?          OTHER ROUTE:TOOTHPASTE?
     Route: 004
     Dates: start: 20170918, end: 20170922
  5. CLARITIN [Concomitant]
     Active Substance: LORATADINE

REACTIONS (2)
  - Malaise [None]
  - Dysgeusia [None]

NARRATIVE: CASE EVENT DATE: 20170918
